FAERS Safety Report 6811386-2 (Version None)
Quarter: 2010Q2

REPORT INFORMATION
  Report Type: 
  Country: None (occurrence: None)
  Receive Date: 20100630
  Receipt Date: 20100325
  Transmission Date: 20101027
  Serious: Yes (Other)
  Sender: FDA-Public Use
  Company Number: US-AMGEN-QUU394928

PATIENT
  Sex: Male

DRUGS (16)
  1. EPOGEN [Suspect]
     Indication: DIALYSIS
     Route: 065
  2. SENSIPAR [Concomitant]
     Indication: HYPERPARATHYROIDISM SECONDARY
  3. LEVOTHYROXINE SODIUM [Concomitant]
  4. TOPIRAMATE [Concomitant]
  5. AMIODARONE [Concomitant]
  6. PRILOSEC [Concomitant]
  7. DIVALPROEX SODIUM [Concomitant]
  8. HYDROCORTISONE [Concomitant]
  9. MIDODRINE HYDROCHLORIDE [Concomitant]
  10. ZOFRAN [Concomitant]
  11. NITROGLYCERIN [Concomitant]
  12. LORCET-HD [Concomitant]
  13. LORTAB [Concomitant]
  14. VITARENAL [Concomitant]
  15. ZOLOFT [Concomitant]
  16. IRON [Concomitant]

REACTIONS (1)
  - DRUG INEFFECTIVE [None]
